FAERS Safety Report 5787110-1 (Version None)
Quarter: 2008Q2

REPORT INFORMATION
  Report Type: 
  Country: None (occurrence: None)
  Receive Date: 20080625
  Receipt Date: 20080617
  Transmission Date: 20081010
  Serious: Yes (Other)
  Sender: FDA-Public Use
  Company Number: JP-BRISTOL-MYERS SQUIBB COMPANY-14207047

PATIENT
  Age: 75 Year
  Sex: Male

DRUGS (10)
  1. GATIFLOXACIN [Suspect]
     Indication: BRONCHITIS
     Dosage: PRESCRIBED 400MG/DAY,DIVIDED BID
     Route: 048
     Dates: start: 20080516, end: 20080519
  2. SPELEAR [Concomitant]
     Route: 048
     Dates: start: 20080425
  3. AMBROXOL HCL [Concomitant]
     Route: 048
     Dates: start: 20080425
  4. HOKUNALIN [Concomitant]
     Route: 062
     Dates: start: 20080425
  5. MAGNESIUM OXIDE [Concomitant]
     Route: 048
     Dates: start: 20080425
  6. LANSOPRAZOLE [Concomitant]
     Route: 048
     Dates: start: 20080425
  7. LASIX [Concomitant]
     Route: 048
     Dates: start: 20080425
  8. TANATRIL [Concomitant]
     Route: 048
     Dates: start: 20080425
  9. CALCIUM LACTATE [Concomitant]
     Route: 048
     Dates: start: 20080425
  10. WARFARIN SODIUM [Concomitant]
     Route: 048
     Dates: start: 20080425

REACTIONS (1)
  - HYPOGLYCAEMIA [None]
